FAERS Safety Report 21121353 (Version 1)
Quarter: 2022Q3

REPORT INFORMATION
  Report Type: Spontaneous
  Country: FR (occurrence: FR)
  Receive Date: 20220722
  Receipt Date: 20220722
  Transmission Date: 20221026
  Serious: Yes (Death)
  Sender: FDA-Public Use
  Company Number: None

PATIENT
  Age: 79 Year
  Sex: Female

DRUGS (1)
  1. METHOTREXATE [Suspect]
     Active Substance: METHOTREXATE
     Indication: Rheumatoid arthritis
     Dates: start: 20220312, end: 20220321

REACTIONS (4)
  - Bone marrow failure [Fatal]
  - Overdose [Fatal]
  - Incorrect dosage administered [Fatal]
  - Medication error [Fatal]

NARRATIVE: CASE EVENT DATE: 20220301
